FAERS Safety Report 4877669-0 (Version None)
Quarter: 2005Q4

REPORT INFORMATION
  Report Type: 
  Country: None (occurrence: None)
  Receive Date: 20051206
  Receipt Date: 20050830
  Transmission Date: 20060501
  Serious: No
  Sender: FDA-Public Use
  Company Number: USA0508106877

PATIENT
  Age: 74 Year
  Sex: Female

DRUGS (6)
  1. CYMBALTA [Suspect]
     Indication: DEPRESSION
     Dosage: 30 MG DAY
     Dates: start: 20050701
  2. TOPROL-XL [Concomitant]
  3. PREMARIN [Concomitant]
  4. NORVASC [Concomitant]
  5. DIOVAN [Concomitant]
  6. CLONAZEPAM [Concomitant]

REACTIONS (5)
  - ARTHRALGIA [None]
  - CONSTIPATION [None]
  - JOINT SWELLING [None]
  - OEDEMA PERIPHERAL [None]
  - PAIN IN EXTREMITY [None]
